FAERS Safety Report 21144138 (Version 1)
Quarter: 2022Q3

REPORT INFORMATION
  Report Type: Spontaneous
  Country: CN (occurrence: CN)
  Receive Date: 20220728
  Receipt Date: 20220728
  Transmission Date: 20221027
  Serious: Yes (Other)
  Sender: FDA-Public Use
  Company Number: CN-GLAXOSMITHKLINE-CNCH2022APC026422

PATIENT

DRUGS (4)
  1. IBUPROFEN [Suspect]
     Active Substance: IBUPROFEN
     Indication: Neck pain
     Dosage: 0.3 G, BID
     Route: 048
     Dates: start: 20220718, end: 20220719
  2. IBUPROFEN [Suspect]
     Active Substance: IBUPROFEN
     Indication: Arthralgia
  3. CHLORZOXAZONE [Suspect]
     Active Substance: CHLORZOXAZONE
     Indication: Neck pain
     Dosage: 0.2 G, TID
     Route: 048
     Dates: start: 20220717, end: 20220718
  4. CHLORZOXAZONE [Suspect]
     Active Substance: CHLORZOXAZONE
     Indication: Arthralgia

REACTIONS (8)
  - Angioedema [Recovered/Resolved]
  - Rash [Recovered/Resolved]
  - Flushing [Recovered/Resolved]
  - Pruritus [Recovered/Resolved]
  - Eyelid oedema [Recovered/Resolved]
  - Lacrimation increased [Recovered/Resolved]
  - Increased upper airway secretion [Recovered/Resolved]
  - Drug hypersensitivity [Recovered/Resolved]

NARRATIVE: CASE EVENT DATE: 20220718
